FAERS Safety Report 6647008-3 (Version None)
Quarter: 2010Q1

REPORT INFORMATION
  Report Type: 
  Country: None (occurrence: None)
  Receive Date: 20100323
  Receipt Date: 20091209
  Transmission Date: 20100710
  Serious: No
  Sender: FDA-Public Use
  Company Number: A0834308A

PATIENT
  Age: 58 Year
  Sex: Female

DRUGS (2)
  1. LAMICTAL XR [Suspect]
     Dosage: 100MG PER DAY
     Route: 048
     Dates: start: 20091109
  2. PAROXETINE HCL [Concomitant]

REACTIONS (2)
  - DYSKINESIA [None]
  - HEADACHE [None]
